FAERS Safety Report 12491582 (Version 1)
Quarter: 2016Q2

REPORT INFORMATION
  Report Type: Spontaneous
  Country: US (occurrence: None)
  Receive Date: 20160622
  Receipt Date: 20160622
  Transmission Date: 20160815
  Serious: Yes (Other)
  Sender: FDA-Public Use
  Company Number: None

PATIENT
  Age: 58 Year
  Sex: Female
  Weight: 63.5 kg

DRUGS (6)
  1. IBUPHROPHEN [Concomitant]
  2. ELIQUIS [Suspect]
     Active Substance: APIXABAN
  3. ASPIRIN. [Concomitant]
     Active Substance: ASPIRIN
  4. PROLOSEC [Concomitant]
  5. XARELTO [Suspect]
     Active Substance: RIVAROXABAN
     Indication: DEEP VEIN THROMBOSIS
     Dates: start: 20160113, end: 20160229
  6. COUMADIN [Suspect]
     Active Substance: WARFARIN SODIUM
     Indication: DEEP VEIN THROMBOSIS
     Dates: start: 20160113, end: 20160229

REACTIONS (7)
  - Ageusia [None]
  - Anosmia [None]
  - Skin lesion [None]
  - Abdominal pain [None]
  - Impaired healing [None]
  - Fluid retention [None]
  - Scratch [None]

NARRATIVE: CASE EVENT DATE: 20160201
